FAERS Safety Report 8579604-0 (Version None)
Quarter: 2012Q3

REPORT INFORMATION
  Report Type: 
  Country: None (occurrence: None)
  Receive Date: 20120808
  Receipt Date: 20120730
  Transmission Date: 20120928
  Serious: Yes (Other)
  Sender: FDA-Public Use
  Company Number: SE-AMGEN-SWESP2012048860

PATIENT
  Age: 19 Year
  Sex: Male

DRUGS (1)
  1. NEUPOGEN [Suspect]
     Indication: INFANTILE GENETIC AGRANULOCYTOSIS
     Dosage: 15 MUG/KG, QD

REACTIONS (4)
  - LEUKAEMIA [None]
  - GRAFT VERSUS HOST DISEASE [None]
  - STEM CELL TRANSPLANT [None]
  - MYELODYSPLASTIC SYNDROME [None]
